FAERS Safety Report 6292262-3 (Version None)
Quarter: 2009Q3

REPORT INFORMATION
  Report Type: 
  Country: None (occurrence: None)
  Receive Date: 20090731
  Receipt Date: 20090724
  Transmission Date: 20100115
  Serious: Yes (Hospitalization)
  Sender: FDA-Public Use
  Company Number: US-KINGPHARMUSA00001-K200900879

PATIENT
  Age: 65 Year
  Sex: Female

DRUGS (15)
  1. ALTACE [Suspect]
     Indication: HYPERTENSION
     Dosage: 2.5 MG, QD
     Route: 048
     Dates: start: 20080901, end: 20081009
  2. CORDAREX [Suspect]
     Indication: ATRIAL FIBRILLATION
     Dosage: 200 MG, QD
     Route: 048
     Dates: start: 20080901, end: 20081010
  3. PARACETAMOL [Suspect]
     Indication: PAIN
     Dosage: 3 G, UNK
     Route: 048
     Dates: start: 20080905, end: 20081003
  4. NOVALGIN [Suspect]
     Indication: PAIN
     Dosage: 1500 MG, QD
     Route: 048
     Dates: start: 20080905, end: 20081009
  5. SPIRONOLACTONE [Suspect]
     Indication: HYPERTENSION
     Dosage: 100 MG, QD
     Route: 048
     Dates: start: 20080901, end: 20081009
  6. ZYVOXID [Suspect]
     Indication: INTERVERTEBRAL DISCITIS
     Dosage: 1200 MG, QD
     Route: 048
     Dates: start: 20080922, end: 20081009
  7. TOREM [Suspect]
     Indication: HYPERTENSION
     Dosage: 20 MG, QD
     Route: 048
     Dates: start: 20090729
  8. XIPAMIDE [Suspect]
     Indication: HYPERTENSION
     Dosage: 10 MG, QD
     Route: 048
     Dates: start: 20080729, end: 20081008
  9. AMITRIPTYLINE HCL [Concomitant]
     Indication: PAIN
     Dosage: 100 MG, QD
     Route: 048
     Dates: start: 20080729, end: 20081008
  10. BELOC ZOK [Concomitant]
     Indication: HYPERTENSION
     Dosage: 100 MG, QD
     Route: 048
     Dates: start: 20080729, end: 20081008
  11. ENOXAPARIN SODIUM [Concomitant]
     Indication: THROMBOSIS PROPHYLAXIS
     Dosage: 60 MG, UNK
     Route: 058
     Dates: start: 20080729, end: 20081007
  12. DIGITOXIN [Concomitant]
     Indication: ATRIAL FIBRILLATION
     Dosage: 0.07 MG, QD
     Route: 048
     Dates: start: 20060101
  13. OMEPRAZOLE [Concomitant]
     Indication: PROPHYLAXIS AGAINST GASTROINTESTINAL ULCER
     Dosage: 40 MG, QD
     Route: 048
     Dates: start: 20061201
  14. OXYCODONE [Concomitant]
     Indication: PAIN
     Dosage: 20 MG, QD
     Route: 048
     Dates: start: 20080901
  15. SIMVASTATIN [Concomitant]
     Indication: HYPERLIPIDAEMIA
     Dosage: 20 MG, QD
     Route: 048
     Dates: start: 20060101

REACTIONS (4)
  - DRUG INTERACTION [None]
  - NAUSEA [None]
  - RENAL FAILURE ACUTE [None]
  - VOMITING [None]
